FAERS Safety Report 6387367-2 (Version None)
Quarter: 2009Q3

REPORT INFORMATION
  Report Type: 
  Country: None (occurrence: None)
  Receive Date: 20090930
  Receipt Date: 20090914
  Transmission Date: 20100115
  Serious: Yes (Hospitalization)
  Sender: FDA-Public Use
  Company Number: 2009AL001478

PATIENT
  Age: 72 Year
  Sex: Female

DRUGS (26)
  1. DIGOXIN [Suspect]
     Dosage: 0.25MG, DAILY, PO
     Route: 048
  2. ASPIRIN [Concomitant]
  3. TOPROL-XL [Concomitant]
  4. XANAX [Concomitant]
  5. ZYRTEC [Concomitant]
  6. LASIX [Concomitant]
  7. SPIRONOLACTONE [Concomitant]
  8. PREVACID [Concomitant]
  9. FISH OIL [Concomitant]
  10. CALCIUM [Concomitant]
  11. VITAMIN E [Concomitant]
  12. OMEPRAZOLE [Concomitant]
  13. LEVOTHYROXINE [Concomitant]
  14. TRICOR [Concomitant]
  15. METOPROLOL [Concomitant]
  16. KEFLEX [Concomitant]
  17. SYNTHROID [Concomitant]
  18. DIAZEPAM [Concomitant]
  19. PRAVASTATIN [Concomitant]
  20. FLUCONAZOLE [Concomitant]
  21. CEPHALEXIN [Concomitant]
  22. AVELOX [Concomitant]
  23. ADVICOR [Concomitant]
  24. HYDROCORTISONE [Concomitant]
  25. METHYLPREDNISOLONE ACETATE [Concomitant]
  26. CLINDAMYCIN [Concomitant]

REACTIONS (13)
  - ANXIETY [None]
  - CHEST DISCOMFORT [None]
  - CHEST PAIN [None]
  - DYSPNOEA [None]
  - FATIGUE [None]
  - FEAR [None]
  - FEELING ABNORMAL [None]
  - ISCHAEMIA [None]
  - MULTIPLE INJURIES [None]
  - OEDEMA PERIPHERAL [None]
  - ORTHOPNOEA [None]
  - PALPITATIONS [None]
  - SURGERY [None]
